FAERS Safety Report 9629094 (Version 1)
Quarter: 2013Q4

REPORT INFORMATION
  Report Type: Spontaneous
  Country: DE (occurrence: DE)
  Receive Date: 20131017
  Receipt Date: 20131017
  Transmission Date: 20140711
  Serious: Yes (Other)
  Sender: FDA-Public Use
  Company Number: DE-PFIZER INC-2013290350

PATIENT
  Sex: Female

DRUGS (1)
  1. AZULFIDINE [Suspect]

REACTIONS (1)
  - Rheumatoid arthritis [Unknown]
